FAERS Safety Report 6077048-7 (Version None)
Quarter: 2009Q1

REPORT INFORMATION
  Report Type: 
  Country: None (occurrence: None)
  Receive Date: 20090213
  Receipt Date: 20090203
  Transmission Date: 20090719
  Serious: Yes (Other)
  Sender: FDA-Public Use
  Company Number: ES-JNJFOC-20090201564

PATIENT
  Sex: Female

DRUGS (11)
  1. REMICADE [Suspect]
     Indication: SPONDYLOARTHROPATHY
     Route: 042
  2. CORTICOID [Concomitant]
  3. METHOTREXATE [Concomitant]
  4. CHLOROQ [Concomitant]
  5. ACFOL [Concomitant]
  6. OMEPRAZOLE [Concomitant]
  7. ANTIDIABETIC [Concomitant]
  8. OPIOIDE [Concomitant]
  9. IECA [Concomitant]
  10. IRON [Concomitant]
  11. ANTIHYPERTENSIVE [Concomitant]

REACTIONS (1)
  - BREAST CANCER [None]
